FAERS Safety Report 10413210 (Version 1)
Quarter: 2014Q2

REPORT INFORMATION
  Report Type: Spontaneous
  Country: US (occurrence: None)
  Receive Date: 20140530
  Receipt Date: 20140530
  Transmission Date: 20141212
  Serious: No
  Sender: FDA-Public Use
  Company Number: 226087

PATIENT
  Age: 68 Year
  Sex: Female

DRUGS (3)
  1. PICATO (INGENOL MEBUTATE) (0.015 %, GEL) [Suspect]
     Indication: ACTINIC KERATOSIS
     Dates: start: 20140206
  2. OMEPRAZOLE [Concomitant]
  3. LISINOPRIL [Concomitant]

REACTIONS (10)
  - Application site vesicles [None]
  - Application site pain [None]
  - Application site pain [None]
  - Application site irritation [None]
  - Application site erythema [None]
  - Application site reaction [None]
  - Application site erosion [None]
  - Drug administration error [None]
  - Drug dose omission [None]
  - Skin tightness [None]
